FAERS Safety Report 7511708-3 (Version None)
Quarter: 2011Q2

REPORT INFORMATION
  Report Type: 
  Country: None (occurrence: None)
  Receive Date: 20110531
  Receipt Date: 20110520
  Transmission Date: 20111010
  Serious: Yes (Hospitalization, Other)
  Sender: FDA-Public Use
  Company Number: JP-JNJFOC-20110507238

PATIENT
  Age: 78 Year
  Sex: Female

DRUGS (3)
  1. MITOMYCIN [Suspect]
     Indication: HEPATIC NEOPLASM MALIGNANT
     Route: 042
  2. DOXORUBICIN HYDROCHLORIDE [Suspect]
     Indication: HEPATIC NEOPLASM MALIGNANT
     Route: 042
  3. LIPIODOL [Suspect]
     Indication: PROPHYLAXIS
     Route: 065

REACTIONS (4)
  - ERYTHEMA [None]
  - NECROSIS [None]
  - SKIN ULCER [None]
  - FLANK PAIN [None]
